FAERS Safety Report 7546926-1 (Version None)
Quarter: 2011Q2

REPORT INFORMATION
  Report Type: 
  Country: None (occurrence: None)
  Receive Date: 20110614
  Receipt Date: 20110606
  Transmission Date: 20111010
  Serious: Yes (Other)
  Sender: FDA-Public Use
  Company Number: JP-MERCK-1004USA00360

PATIENT
  Age: 39 Year
  Sex: Male
  Weight: 63 kg

DRUGS (5)
  1. JANUVIA [Suspect]
     Route: 048
     Dates: start: 20100701, end: 20101013
  2. JANUVIA [Suspect]
     Route: 048
     Dates: start: 20100108, end: 20100317
  3. JANUVIA [Suspect]
     Indication: DIABETES MELLITUS
     Route: 048
     Dates: start: 20091109, end: 20091207
  4. AMOXAPINE [Concomitant]
     Indication: RETROGRADE EJACULATION
     Route: 048
     Dates: start: 20090107, end: 20100317
  5. AMOXAPINE [Concomitant]
     Route: 048
     Dates: start: 20100616

REACTIONS (3)
  - SPERMATOGENESIS ABNORMAL [None]
  - ASTHENOSPERMIA [None]
  - AZOOSPERMIA [None]
